FAERS Safety Report 20514848 (Version 2)
Quarter: 2022Q4

REPORT INFORMATION
  Report Type: Spontaneous
  Country: US (occurrence: US)
  Receive Date: 20220224
  Receipt Date: 20221004
  Transmission Date: 20230113
  Serious: Yes (Other)
  Sender: FDA-Public Use
  Company Number: US-SA-SAC20220221001146

PATIENT
  Age: 57 Year
  Sex: Female

DRUGS (2)
  1. KEVZARA [Suspect]
     Active Substance: SARILUMAB
     Indication: Rheumatoid arthritis
     Dosage: 200 MG
     Route: 058
     Dates: start: 20191218, end: 202202
  2. KEVZARA [Suspect]
     Active Substance: SARILUMAB
     Dosage: 200 UNK
     Route: 058

REACTIONS (4)
  - Rheumatoid arthritis [Unknown]
  - Fall [Recovering/Resolving]
  - Fractured coccyx [Recovering/Resolving]
  - Arthralgia [Recovering/Resolving]

NARRATIVE: CASE EVENT DATE: 20220201
